FAERS Safety Report 10550723 (Version 1)
Quarter: 2014Q4

REPORT INFORMATION
  Report Type: Spontaneous
  Country: US (occurrence: None)
  Receive Date: 20141028
  Receipt Date: 20141028
  Transmission Date: 20150529
  Serious: No
  Sender: FDA-Public Use
  Company Number: None

PATIENT
  Sex: Female
  Weight: 54.43 kg

DRUGS (9)
  1. SIMVASTATIN. [Suspect]
     Active Substance: SIMVASTATIN
     Indication: DRUG THERAPY
     Dosage: GENERICS?SOME AT BED TIME?SOME IN MORN?BY MOUTH
     Route: 048
     Dates: start: 201402
  2. CLONIDINE. [Suspect]
     Active Substance: CLONIDINE
     Dosage: 1/2 2  TIMES A DAY
  3. LISINOPRIL. [Suspect]
     Active Substance: LISINOPRIL
  4. CARVEDILOL. [Suspect]
     Active Substance: CARVEDILOL
     Dosage: 1/2 TIMES A DAY
  5. TEMAZEPAM. [Suspect]
     Active Substance: TEMAZEPAM
  6. FUROSEMIDE. [Suspect]
     Active Substance: FUROSEMIDE
  7. KLOR-CON [Suspect]
     Active Substance: POTASSIUM CHLORIDE
  8. SIMVASTATIN. [Suspect]
     Active Substance: SIMVASTATIN
     Indication: HYPERTENSION
     Dosage: GENERICS?SOME AT BED TIME?SOME IN MORN?BY MOUTH
     Route: 048
     Dates: start: 201402
  9. SIMVASTATIN. [Suspect]
     Active Substance: SIMVASTATIN
     Indication: CARDIAC DISORDER
     Dosage: GENERICS?SOME AT BED TIME?SOME IN MORN?BY MOUTH
     Route: 048
     Dates: start: 201402

REACTIONS (5)
  - Cardiac failure congestive [None]
  - Pruritus generalised [None]
  - Skin discolouration [None]
  - Rash [None]
  - Pulmonary oedema [None]

NARRATIVE: CASE EVENT DATE: 201402
